FAERS Safety Report 9487041 (Version 1)
Quarter: 2013Q3

REPORT INFORMATION
  Report Type: Spontaneous
  Country: GB (occurrence: GB)
  Receive Date: 20130829
  Receipt Date: 20130829
  Transmission Date: 20140515
  Serious: Yes (Other)
  Sender: FDA-Public Use
  Company Number: GB-JNJFOC-20130815230

PATIENT
  Age: 59 Year
  Sex: Female

DRUGS (2)
  1. SIMPONI [Suspect]
     Indication: PRODUCT USED FOR UNKNOWN INDICATION
     Route: 058
     Dates: start: 20130801
  2. SIMPONI [Suspect]
     Indication: PRODUCT USED FOR UNKNOWN INDICATION
     Route: 058

REACTIONS (9)
  - Mouth haemorrhage [Unknown]
  - Dysgeusia [Unknown]
  - Insomnia [Unknown]
  - Depression [Unknown]
  - Diarrhoea [Unknown]
  - Nausea [Unknown]
  - Hypoaesthesia [Unknown]
  - Burning sensation [Unknown]
  - Pain in extremity [Unknown]
